FAERS Safety Report 8310356-5 (Version None)
Quarter: 2012Q2

REPORT INFORMATION
  Report Type: 
  Country: None (occurrence: None)
  Receive Date: 20120425
  Receipt Date: 20120416
  Transmission Date: 20120825
  Serious: No
  Sender: FDA-Public Use
  Company Number: US-BAYER-2012-038853

PATIENT
  Age: 92 Year
  Sex: Male

DRUGS (1)
  1. ALEVE (CAPLET) [Suspect]
     Indication: ANALGESIC THERAPY
     Dosage: 1 U, QOD
     Route: 048
     Dates: start: 20120401

REACTIONS (2)
  - NO ADVERSE EVENT [None]
  - PAIN [None]
